FAERS Safety Report 10478139 (Version 3)
Quarter: 2014Q4

REPORT INFORMATION
  Report Type: Spontaneous
  Country: US (occurrence: US)
  Receive Date: 20140926
  Receipt Date: 20141017
  Transmission Date: 20150528
  Serious: No
  Sender: FDA-Public Use
  Company Number: US-PFIZER INC-2014264786

PATIENT
  Age: 64 Year
  Sex: Female
  Weight: 118 kg

DRUGS (2)
  1. XELJANZ [Suspect]
     Active Substance: TOFACITINIB CITRATE
     Indication: RHEUMATOID ARTHRITIS
     Dosage: 5 MG, 2X/DAY
     Route: 048
     Dates: start: 20140723, end: 20141008
  2. PREDNISONE. [Concomitant]
     Active Substance: PREDNISONE
     Dosage: UNK

REACTIONS (7)
  - Hyperhidrosis [Unknown]
  - Feeling hot [Unknown]
  - Neck mass [Unknown]
  - Drug ineffective [Unknown]
  - Weight increased [Unknown]
  - Dyspepsia [Unknown]
  - Neck pain [Unknown]

NARRATIVE: CASE EVENT DATE: 20141008
